FAERS Safety Report 8069673-9 (Version None)
Quarter: 2012Q1

REPORT INFORMATION
  Report Type: 
  Country: None (occurrence: None)
  Receive Date: 20120125
  Receipt Date: 20120116
  Transmission Date: 20120608
  Serious: Yes (Death)
  Sender: FDA-Public Use
  Company Number: US-ROXANE LABORATORIES, INC.-2012-EU-00479GD

PATIENT
  Age: 52 Year
  Sex: Female

DRUGS (10)
  1. CLONAZEPAM [Suspect]
     Route: 048
  2. SERTRALINE HYDROCHLORIDE [Suspect]
     Route: 048
  3. ZOLPIDEM [Suspect]
     Route: 048
  4. OLANZAPINE [Suspect]
     Route: 048
  5. TEMAZEPAM [Suspect]
     Route: 048
  6. MORPHINE [Suspect]
     Route: 048
  7. TRAZODONE HCL [Suspect]
     Route: 048
  8. LORAZEPAM [Suspect]
     Route: 048
  9. OXCARBAZEPINE [Suspect]
     Route: 048
  10. FLUOXETINE [Suspect]
     Route: 048

REACTIONS (1)
  - COMPLETED SUICIDE [None]
